FAERS Safety Report 4646535-8 (Version None)
Quarter: 2005Q2

REPORT INFORMATION
  Report Type: 
  Country: None (occurrence: None)
  Receive Date: 20050427
  Receipt Date: 20040921
  Transmission Date: 20051028
  Serious: No
  Sender: FDA-Public Use
  Company Number: US-GLAXOSMITHKLINE-A0526675A

PATIENT
  Age: 5 Year
  Sex: Male

DRUGS (3)
  1. FLOVENT [Suspect]
     Dosage: 110MG PER DAY
     Route: 055
  2. HYDROXYZINE [Concomitant]
     Route: 065
  3. NASONEX [Concomitant]

REACTIONS (3)
  - CHEST DISCOMFORT [None]
  - ORAL DISCOMFORT [None]
  - WHEEZING [None]
